FAERS Safety Report 25980962 (Version 1)
Quarter: 2025Q4

REPORT INFORMATION
  Report Type: Report from Study
  Country: US (occurrence: US)
  Receive Date: 20251030
  Receipt Date: 20251030
  Transmission Date: 20260118
  Serious: Yes (Other)
  Sender: ABBVIE
  Company Number: US-ABBVIE-6477488

PATIENT
  Age: 63 Year
  Sex: Male

DRUGS (9)
  1. SKYRIZI [Suspect]
     Active Substance: RISANKIZUMAB-RZAA
     Indication: Crohn^s disease
     Dosage: 360 MG/2.4ML
     Route: 058
     Dates: start: 20240701
  2. LISINOPRIL [Concomitant]
     Active Substance: LISINOPRIL
     Indication: Hypertension
     Dates: start: 20250123
  3. HYDROCHLOROTHIAZIDE [Concomitant]
     Active Substance: HYDROCHLOROTHIAZIDE
     Indication: Hypertension
     Dates: start: 20250123
  4. METOPROLOL [Concomitant]
     Active Substance: METOPROLOL
     Indication: Heart rate
     Dates: start: 20250123
  5. PREVIDENT [Concomitant]
     Active Substance: SODIUM FLUORIDE
     Indication: Dry mouth
     Dates: start: 20251001
  6. VITAMIN B12 [Concomitant]
     Active Substance: CYANOCOBALAMIN
     Indication: Product used for unknown indication
     Dates: start: 20241003, end: 20251007
  7. FIBER THERAPY (CALCIUM POLYCARBOPHIL) [Concomitant]
     Active Substance: CALCIUM POLYCARBOPHIL
     Indication: Product used for unknown indication
     Dosage: TIME INTERVAL: 0.33333333 DAYS: 2 TEASPOONS THRICE A DAY
     Dates: start: 20240901, end: 20251007
  8. ALIGN [Concomitant]
     Active Substance: BIFIDOBACTERIUM LONGUM SUBSP. INFANTIS
     Indication: Gastrointestinal disorder
     Dates: start: 20251001, end: 20251007
  9. HERBALS\TURMERIC [Concomitant]
     Active Substance: HERBALS\TURMERIC
     Indication: Inflammation
     Dosage: 1000 DOSE
     Dates: start: 20250301, end: 20251007

REACTIONS (10)
  - Basal cell carcinoma [Unknown]
  - Back pain [Not Recovered/Not Resolved]
  - Neck pain [Not Recovered/Not Resolved]
  - Crohn^s disease [Unknown]
  - Incisional hernia [Unknown]
  - Hypertension [Unknown]
  - Heart rate abnormal [Unknown]
  - Dry mouth [Unknown]
  - Gastrointestinal disorder [Unknown]
  - Inflammation [Unknown]

NARRATIVE: CASE EVENT DATE: 20240901
